FAERS Safety Report 5533019-8 (Version None)
Quarter: 2007Q4

REPORT INFORMATION
  Report Type: 
  Country: None (occurrence: None)
  Receive Date: 20071204
  Receipt Date: 20071120
  Transmission Date: 20080405
  Serious: Yes (Other)
  Sender: FDA-Public Use
  Company Number: GB-RANBAXY-2007RR-11406

PATIENT

DRUGS (8)
  1. TAMSULOSIN HCL [Suspect]
     Indication: PROSTATISM
     Dosage: 400 UG, QD
     Dates: start: 20070704, end: 20070910
  2. AMLODIPINE [Concomitant]
     Dosage: 5 MG, QD
     Dates: start: 20070830
  3. ASPIRIN TABLETS BP 300MG [Concomitant]
     Dosage: 75 MG, QD
  4. ATORVASTATIN [Concomitant]
     Dosage: 80 MG, QD
  5. CLOPIDOGREL [Concomitant]
     Dosage: 75 MG, QD
     Dates: start: 20060616
  6. LANSOPRAZOLE 15 MG GASTRO-RESISTANT CAPSULES [Concomitant]
     Dosage: 15 MG, QD
  7. NEBIVOLOL [Concomitant]
     Dosage: 5 MG, QD
  8. OMACOR [Concomitant]
     Dosage: 1 DF, QD

REACTIONS (1)
  - ANGINA PECTORIS [None]
